FAERS Safety Report 24382486 (Version 1)
Quarter: 2024Q4

REPORT INFORMATION
  Report Type: Spontaneous
  Country: CH (occurrence: CH)
  Receive Date: 20241001
  Receipt Date: 20241001
  Transmission Date: 20250115
  Serious: Yes (Other)
  Sender: SANOFI AVENTIS
  Company Number: CH-SA-2024SA276783

PATIENT
  Age: 44 Year
  Sex: Male

DRUGS (3)
  1. DUPIXENT [Suspect]
     Active Substance: DUPILUMAB
     Indication: Dermatitis atopic
     Dosage: UNK, FOR 2 MONTHS
  2. ABROCITINIB [Concomitant]
     Active Substance: ABROCITINIB
     Indication: Dermatitis atopic
     Dosage: UNK
  3. TRALOKINUMAB [Concomitant]
     Active Substance: TRALOKINUMAB
     Indication: Dermatitis atopic
     Dosage: 1 DF

REACTIONS (2)
  - Cataract [Unknown]
  - Conjunctivitis [Recovering/Resolving]
